FAERS Safety Report 4817628-7 (Version None)
Quarter: 2005Q4

REPORT INFORMATION
  Report Type: 
  Country: None (occurrence: None)
  Receive Date: 20051019
  Receipt Date: 20050105
  Transmission Date: 20060501
  Serious: Yes (Other)
  Sender: FDA-Public Use
  Company Number: PHEH2005US00613

PATIENT
  Age: 67 Year
  Sex: Female

DRUGS (2)
  1. MIACALCIN [Suspect]
     Indication: OSTEOPENIA
     Dosage: 200 IU, QD, NASAL
     Route: 045
     Dates: start: 20010101, end: 20041201
  2. NASONEX (MOMETASONE FUMARATE) [Concomitant]

REACTIONS (4)
  - PAIN [None]
  - PYREXIA [None]
  - SWELLING FACE [None]
  - VOMITING [None]
